FAERS Safety Report 20374610 (Version 1)
Quarter: 2022Q1

REPORT INFORMATION
  Report Type: Spontaneous
  Country: US (occurrence: None)
  Receive Date: 20220124
  Receipt Date: 20220124
  Transmission Date: 20220424
  Serious: Yes (Hospitalization)
  Sender: FDA-Public Use
  Company Number: None

PATIENT
  Age: 68 Year
  Sex: Male
  Weight: 96.5 kg

DRUGS (2)
  1. ENOXAPARIN [Suspect]
     Active Substance: ENOXAPARIN
     Indication: COVID-19 pneumonia
     Dosage: FREQUENCY : TWICE A DAY;?
     Route: 058
     Dates: start: 20220110, end: 20220122
  2. clopidogrel 75mg PO daily [Concomitant]
     Dates: start: 20210110, end: 20220122

REACTIONS (2)
  - Haematoma muscle [None]
  - Haemorrhage [None]

NARRATIVE: CASE EVENT DATE: 20220122
